FAERS Safety Report 7050638-0 (Version None)
Quarter: 2010Q4

REPORT INFORMATION
  Report Type: 
  Country: None (occurrence: None)
  Receive Date: 20101018
  Receipt Date: 20101006
  Transmission Date: 20110411
  Serious: Yes (Other)
  Sender: FDA-Public Use
  Company Number: VE-GENENTECH-307832

PATIENT
  Sex: Female
  Weight: 52 kg

DRUGS (1)
  1. MABTHERA [Suspect]
     Indication: LYMPHOMA
     Dosage: 607 MG, UNK
     Route: 042
     Dates: start: 20101005

REACTIONS (6)
  - CHEST PAIN [None]
  - CHILLS [None]
  - DIZZINESS [None]
  - GASTROINTESTINAL MOTILITY DISORDER [None]
  - HEADACHE [None]
  - HYPOTENSION [None]
